FAERS Safety Report 8376580-0 (Version None)
Quarter: 2012Q2

REPORT INFORMATION
  Report Type: 
  Country: None (occurrence: None)
  Receive Date: 20120522
  Receipt Date: 20120518
  Transmission Date: 20120825
  Serious: No
  Sender: FDA-Public Use
  Company Number: US-PFIZER INC-2012121440

PATIENT
  Sex: Female
  Weight: 53 kg

DRUGS (2)
  1. PROTONIX [Suspect]
     Indication: BARRETT'S OESOPHAGUS
     Dosage: 40 MG, 1X/DAY
     Route: 048
     Dates: start: 20090101
  2. LACTULOSE [Concomitant]
     Dosage: UNK

REACTIONS (1)
  - ABDOMINAL DISCOMFORT [None]
